FAERS Safety Report 24828606 (Version 1)
Quarter: 2025Q1

REPORT INFORMATION
  Report Type: Spontaneous
  Country: FR (occurrence: FR)
  Receive Date: 20250110
  Receipt Date: 20250110
  Transmission Date: 20250408
  Serious: Yes (Other)
  Sender: CELLTRION
  Company Number: FR-EMA-DD-20180109-negievprod-090114

PATIENT

DRUGS (17)
  1. RITUXIMAB [Suspect]
     Active Substance: RITUXIMAB
     Indication: Product used for unknown indication
     Route: 042
     Dates: start: 201202
  2. THYMOCYTE IMMUNE GLOBULIN NOS [Suspect]
     Active Substance: THYMOCYTE IMMUNE GLOBULIN NOS
     Indication: Immunosuppressant drug therapy
  3. EVEROLIMUS [Suspect]
     Active Substance: EVEROLIMUS
     Indication: Immunosuppressant drug therapy
  4. METHYLPREDNISOLONE [Suspect]
     Active Substance: METHYLPREDNISOLONE
     Indication: Immunosuppressant drug therapy
  5. MYCOPHENOLATE MOFETIL [Suspect]
     Active Substance: MYCOPHENOLATE MOFETIL
     Indication: Immunosuppressant drug therapy
  6. PREDNISOLONE [Suspect]
     Active Substance: PREDNISOLONE
     Indication: Immunosuppressant drug therapy
  7. TACROLIMUS [Suspect]
     Active Substance: TACROLIMUS
     Indication: Immunosuppressant drug therapy
  8. AMOXICILLIN\CLAVULANIC ACID [Concomitant]
     Active Substance: AMOXICILLIN\CLAVULANIC ACID
     Dates: end: 2015
  9. INDAPAMIDE [Concomitant]
     Active Substance: INDAPAMIDE
     Dates: end: 2015
  10. ITRACONAZOLE [Concomitant]
     Active Substance: ITRACONAZOLE
     Dates: end: 2015
  11. MANIDIPINE [Concomitant]
     Active Substance: MANIDIPINE
     Dates: end: 2015
  12. NEBIVOLOL [Concomitant]
     Active Substance: NEBIVOLOL
     Dates: end: 2015
  13. OFLOXACIN [Concomitant]
     Active Substance: OFLOXACIN
     Dates: end: 2015
  14. PERINDOPRIL [Concomitant]
     Active Substance: PERINDOPRIL
     Dates: end: 2015
  15. RANITIDINE [Concomitant]
     Active Substance: RANITIDINE
     Dates: end: 2015
  16. SULFAMETHOXAZOLE\TRIMETHOPRIM [Concomitant]
     Active Substance: SULFAMETHOXAZOLE\TRIMETHOPRIM
     Dates: end: 2015
  17. VALGANCICLOVIR [Concomitant]
     Active Substance: VALGANCICLOVIR
     Dates: end: 2015

REACTIONS (2)
  - Post transplant lymphoproliferative disorder [Recovered/Resolved]
  - Epstein-Barr virus infection [Unknown]
